FAERS Safety Report 11790816 (Version 1)
Quarter: 2015Q4

REPORT INFORMATION
  Report Type: Spontaneous
  Country: US (occurrence: US)
  Receive Date: 20151201
  Receipt Date: 20151201
  Transmission Date: 20160305
  Serious: No
  Sender: FDA-Public Use
  Company Number: US-SA-2014SA162819

PATIENT
  Age: 47 Year
  Sex: Male
  Weight: 89.5 kg

DRUGS (8)
  1. RENVELA [Suspect]
     Active Substance: SEVELAMER CARBONATE
     Indication: CHRONIC KIDNEY DISEASE
     Dosage: 800 MG THREE TIMES DAILY WITH MEALS
     Route: 065
     Dates: start: 20140924, end: 20141030
  2. LABETALOL [Concomitant]
     Active Substance: LABETALOL\LABETALOL HYDROCHLORIDE
     Indication: BLOOD PRESSURE MEASUREMENT
     Dates: start: 201409
  3. RENVELA [Suspect]
     Active Substance: SEVELAMER CARBONATE
     Indication: HYPERPHOSPHATAEMIA
     Dosage: 800 MG THREE TIMES DAILY WITH MEALS
     Route: 065
     Dates: start: 20140924, end: 20141030
  4. ASPIRIN. [Concomitant]
     Active Substance: ASPIRIN
     Indication: CARDIAC DISORDER
     Route: 048
     Dates: start: 201409
  5. AMLODIPINE [Concomitant]
     Active Substance: AMLODIPINE BESYLATE
     Indication: BLOOD PRESSURE MEASUREMENT
     Route: 048
     Dates: start: 201409
  6. VITAMINS NOS/FOLIC ACID [Concomitant]
     Dosage: FOR REPLETE LOSSES DURING HD
     Dates: start: 201409, end: 20150212
  7. FOLIC ACID. [Concomitant]
     Active Substance: FOLIC ACID
     Dosage: FOR REPLETE LOSSES DURING HD
     Dates: start: 201409
  8. VITAMIN B12 [Concomitant]
     Active Substance: CYANOCOBALAMIN
     Dosage: ONE/WEEK X 4 UNITS, THEN 1 X 1 MONTH
     Dates: start: 201409

REACTIONS (2)
  - Hyperphosphataemia [Unknown]
  - Rash generalised [Recovered/Resolved]

NARRATIVE: CASE EVENT DATE: 201410
